FAERS Safety Report 23518887 (Version 2)
Quarter: 2024Q1

REPORT INFORMATION
  Report Type: Report from Study
  Country: CL (occurrence: CL)
  Receive Date: 20240213
  Receipt Date: 20240325
  Transmission Date: 20240410
  Serious: No
  Sender: FDA-Public Use
  Company Number: CL-JNJFOC-20240183085

PATIENT
  Age: 69 Year
  Sex: Female

DRUGS (1)
  1. SIMPONI [Suspect]
     Active Substance: GOLIMUMAB
     Indication: Rheumatoid arthritis
     Dosage: STRENGTH 50.00 MG / 0.50 ML
     Route: 058
     Dates: start: 20211124

REACTIONS (4)
  - Device issue [Unknown]
  - Application site bruise [Unknown]
  - Injection site discharge [Unknown]
  - Injection site discolouration [Unknown]

NARRATIVE: CASE EVENT DATE: 20240128
